FAERS Safety Report 9790757 (Version 2)
Quarter: 2013Q4

REPORT INFORMATION
  Report Type: Report from Study
  Country: CA (occurrence: CA)
  Receive Date: 20131231
  Receipt Date: 20131231
  Transmission Date: 20140711
  Serious: Yes (Other)
  Sender: FDA-Public Use
  Company Number: CA-ABBVIE-13P-028-1174842-00

PATIENT
  Sex: Male

DRUGS (1)
  1. HUMIRA [Suspect]
     Indication: PRODUCT USED FOR UNKNOWN INDICATION
     Route: 058
     Dates: start: 20121011, end: 20131107

REACTIONS (4)
  - Pouchitis [Recovered/Resolved]
  - Weight decreased [Unknown]
  - Frequent bowel movements [Unknown]
  - Drug ineffective [Unknown]
